FAERS Safety Report 6555207-4 (Version None)
Quarter: 2010Q1

REPORT INFORMATION
  Report Type: 
  Country: None (occurrence: None)
  Receive Date: 20100128
  Receipt Date: 20100118
  Transmission Date: 20100710
  Serious: Yes (Other)
  Sender: FDA-Public Use
  Company Number: US-AMGEN-QUU386464

PATIENT
  Sex: Female

DRUGS (1)
  1. ENBREL [Suspect]
     Indication: PSORIASIS
     Route: 058
     Dates: start: 20080304, end: 20100118

REACTIONS (15)
  - ALOPECIA UNIVERSALIS [None]
  - DEPRESSION [None]
  - FATIGUE [None]
  - HYPOTHYROIDISM [None]
  - INCREASED TENDENCY TO BRUISE [None]
  - MOOD SWINGS [None]
  - NASOPHARYNGITIS [None]
  - ONYCHOMYCOSIS [None]
  - PRECANCEROUS MUCOSAL LESION [None]
  - PYREXIA [None]
  - SKIN PAPILLOMA [None]
  - TINEA PEDIS [None]
  - VAGINAL INFECTION [None]
  - VULVAL OEDEMA [None]
  - VULVOVAGINAL MYCOTIC INFECTION [None]
